FAERS Safety Report 21742982 (Version 3)
Quarter: 2023Q1

REPORT INFORMATION
  Report Type: Report from Study
  Country: DO (occurrence: DO)
  Receive Date: 20221217
  Receipt Date: 20230303
  Transmission Date: 20230417
  Serious: Yes (Hospitalization, Other)
  Sender: FDA-Public Use
  Company Number: DO-JNJFOC-20221225736

PATIENT
  Sex: Female

DRUGS (1)
  1. IMBRUVICA [Suspect]
     Active Substance: IBRUTINIB
     Indication: Chronic lymphocytic leukaemia
     Route: 048

REACTIONS (11)
  - Cardiac pacemaker insertion [Unknown]
  - Pyrexia [Unknown]
  - Cardiac disorder [Unknown]
  - Dizziness [Unknown]
  - Bradycardia [Unknown]
  - Productive cough [Unknown]
  - Vein disorder [Unknown]
  - Pain in extremity [Unknown]
  - Contusion [Not Recovered/Not Resolved]
  - Fall [Unknown]
  - Senile dementia [Unknown]

NARRATIVE: CASE EVENT DATE: 20220101
